FAERS Safety Report 6613146-4 (Version None)
Quarter: 2010Q1

REPORT INFORMATION
  Report Type: 
  Country: None (occurrence: None)
  Receive Date: 20100224
  Receipt Date: 20100209
  Transmission Date: 20100710
  Serious: Yes (Hospitalization)
  Sender: FDA-Public Use
  Company Number: B0628161A

PATIENT
  Age: 4 Year
  Sex: Male

DRUGS (2)
  1. CHLORAMPHENICOL [Suspect]
     Indication: NEPHRITIC SYNDROME
     Dosage: 2 MG / PER DAY / ORAL
     Route: 048
  2. THIOTEPA [Suspect]
     Indication: NEPHRITIC SYNDROME
     Dosage: 10 MG / PER DAY / ORAL
     Route: 048

REACTIONS (7)
  - ANAEMIA [None]
  - BONE MARROW FAILURE [None]
  - OEDEMA [None]
  - PANCYTOPENIA [None]
  - RENAL DISORDER [None]
  - SYSTEMIC LUPUS ERYTHEMATOSUS [None]
  - UNEVALUABLE EVENT [None]
